FAERS Safety Report 8998815 (Version 3)
Quarter: 2013Q1

REPORT INFORMATION
  Report Type: Spontaneous
  Country: US (occurrence: US)
  Receive Date: 20130103
  Receipt Date: 20130128
  Transmission Date: 20140127
  Serious: Yes (Hospitalization)
  Sender: FDA-Public Use
  Company Number: US-BIOGENIDEC-2012BI064765

PATIENT
  Sex: Female

DRUGS (5)
  1. TYSABRI [Suspect]
     Indication: MULTIPLE SCLEROSIS
     Route: 042
     Dates: start: 20080730, end: 20090911
  2. TYSABRI [Suspect]
     Indication: MULTIPLE SCLEROSIS
     Route: 042
     Dates: start: 20100831
  3. VITAMIN B [Concomitant]
  4. VITAMIN C [Concomitant]
  5. VITAMIN D [Concomitant]

REACTIONS (2)
  - Multiple sclerosis relapse [Recovered/Resolved]
  - Muscle spasticity [Not Recovered/Not Resolved]
